FAERS Safety Report 4677688-3 (Version None)
Quarter: 2005Q2

REPORT INFORMATION
  Report Type: 
  Country: None (occurrence: None)
  Receive Date: 20050531
  Receipt Date: 20050519
  Transmission Date: 20051028
  Serious: Yes (Hospitalization)
  Sender: FDA-Public Use
  Company Number: US-MERCK-0505USA02341

PATIENT
  Age: 74 Year
  Sex: Female
  Weight: 60 kg

DRUGS (3)
  1. VIOXX [Suspect]
     Route: 048
     Dates: start: 20001201
  2. DETROL LA [Concomitant]
     Route: 048
  3. TIMOPTIC [Concomitant]
     Route: 047

REACTIONS (1)
  - CEREBROVASCULAR ACCIDENT [None]
